FAERS Safety Report 14354761 (Version 2)
Quarter: 2018Q2

REPORT INFORMATION
  Report Type: Spontaneous
  Country: JP (occurrence: JP)
  Receive Date: 20180105
  Receipt Date: 20180406
  Transmission Date: 20180711
  Serious: Yes (Other)
  Sender: FDA-Public Use
  Company Number: JP-BAYER-2017-249585

PATIENT
  Age: 33 Year
  Sex: Female

DRUGS (8)
  1. MUCODYNE [Concomitant]
     Active Substance: CARBOCYSTEINE
     Indication: PRODUCTIVE COUGH
     Dosage: 500 MG, QD
     Route: 048
     Dates: start: 20160415, end: 20160421
  2. AVELOX [Suspect]
     Active Substance: MOXIFLOXACIN HYDROCHLORIDE
     Indication: ACUTE SINUSITIS
     Dosage: 400 MG, QD
     Route: 048
     Dates: start: 20160407, end: 20160413
  3. CALONAL [Concomitant]
     Active Substance: ACETAMINOPHEN
     Indication: ANTIPYRESIS
     Dosage: 200 MG, PRN
     Route: 048
     Dates: start: 20160407
  4. MUCODYNE [Concomitant]
     Active Substance: CARBOCYSTEINE
     Indication: PRODUCTIVE COUGH
     Dosage: 500 MG, TID
     Route: 048
     Dates: start: 20160407, end: 20160413
  5. XYZAL [Concomitant]
     Active Substance: LEVOCETIRIZINE DIHYDROCHLORIDE
     Indication: ANTIALLERGIC THERAPY
     Dosage: 5 MG, QD
     Route: 048
     Dates: start: 20160415, end: 20160421
  6. CALONAL [Concomitant]
     Active Substance: ACETAMINOPHEN
     Indication: ANALGESIC THERAPY
  7. AVELOX [Suspect]
     Active Substance: MOXIFLOXACIN HYDROCHLORIDE
     Indication: INFECTION PROPHYLAXIS
     Dosage: 400 MG, QD
     Route: 048
     Dates: start: 20160415, end: 20160421
  8. XYZAL [Concomitant]
     Active Substance: LEVOCETIRIZINE DIHYDROCHLORIDE
     Indication: ANTIALLERGIC THERAPY
     Dosage: 5 MG, QD
     Route: 048
     Dates: start: 20160407, end: 20160413

REACTIONS (2)
  - Oculomucocutaneous syndrome [None]
  - Stevens-Johnson syndrome [None]
